FAERS Safety Report 9161514 (Version 1)
Quarter: 2013Q1

REPORT INFORMATION
  Report Type: Spontaneous
  Country: PH (occurrence: PH)
  Receive Date: 20130313
  Receipt Date: 20130313
  Transmission Date: 20140127
  Serious: Yes (Death)
  Sender: FDA-Public Use
  Company Number: PH-MERCK-1303PHL005017

PATIENT
  Age: 65 Year
  Sex: Female

DRUGS (1)
  1. JANUVIA [Suspect]
     Dosage: 1 DF, QD
     Route: 048

REACTIONS (2)
  - Asthma [Fatal]
  - Cardiac disorder [Fatal]
